FAERS Safety Report 19928663 (Version 2)
Quarter: 2022Q3

REPORT INFORMATION
  Report Type: Other
  Country: CA (occurrence: CA)
  Receive Date: 20211007
  Receipt Date: 20220903
  Transmission Date: 20221027
  Serious: Yes (Other)
  Sender: FDA-Public Use
  Company Number: CA-APOTEX-2021AP043662

PATIENT
  Age: 39 Year
  Sex: Female

DRUGS (4)
  1. FINGOLIMOD [Suspect]
     Active Substance: FINGOLIMOD
     Indication: Product used for unknown indication
     Dosage: UNK
     Route: 065
  2. GILENYA [Suspect]
     Active Substance: FINGOLIMOD HYDROCHLORIDE
     Indication: Relapsing-remitting multiple sclerosis
     Dosage: UNK
     Route: 048
  3. CIPRALEX [Concomitant]
     Active Substance: ESCITALOPRAM OXALATE
     Indication: Product used for unknown indication
     Dosage: 10 MILLIGRAM
     Route: 065
  4. CYANOCOBALAMIN [Concomitant]
     Active Substance: CYANOCOBALAMIN
     Indication: Product used for unknown indication
     Dosage: UNK
     Route: 065

REACTIONS (13)
  - Depressed mood [Unknown]
  - Stress [Unknown]
  - Cardiac disorder [Unknown]
  - Dehydration [Unknown]
  - Malaise [Unknown]
  - Blood test abnormal [Unknown]
  - Gastrointestinal disorder [Unknown]
  - Pollakiuria [Unknown]
  - Product dose omission issue [Unknown]
  - Lower respiratory tract infection [Unknown]
  - Dizziness [Unknown]
  - Influenza [Unknown]
  - Nausea [Unknown]
